FAERS Safety Report 5305872-4 (Version None)
Quarter: 2007Q2

REPORT INFORMATION
  Report Type: 
  Country: None (occurrence: None)
  Receive Date: 20070424
  Receipt Date: 20070413
  Transmission Date: 20071010
  Serious: Yes (Hospitalization, Other)
  Sender: FDA-Public Use
  Company Number: US-AMGEN-STX219735

PATIENT
  Sex: Male

DRUGS (2)
  1. ENBREL [Suspect]
     Indication: PSORIATIC ARTHROPATHY
     Route: 058
     Dates: start: 20030321
  2. METHOTREXATE [Concomitant]
     Route: 065
     Dates: start: 20070313

REACTIONS (2)
  - BLOOD PRESSURE DECREASED [None]
  - CELLULITIS [None]
